FAERS Safety Report 14675753 (Version 1)
Quarter: 2018Q1

REPORT INFORMATION
  Report Type: Spontaneous
  Country: JP (occurrence: JP)
  Receive Date: 20180323
  Receipt Date: 20180323
  Transmission Date: 20180509
  Serious: Yes (Other)
  Sender: FDA-Public Use
  Company Number: JP-AKRON, INC.-2044426

PATIENT
  Age: 67 Year
  Sex: Female

DRUGS (1)
  1. ZIOPTAN [Suspect]
     Active Substance: TAFLUPROST
     Indication: GLAUCOMA
     Route: 047
     Dates: start: 20130904

REACTIONS (2)
  - Dementia Alzheimer^s type [Unknown]
  - Arthralgia [Unknown]

NARRATIVE: CASE EVENT DATE: 20141020
